FAERS Safety Report 13939103 (Version 3)
Quarter: 2017Q4

REPORT INFORMATION
  Report Type: Report from Study
  Country: CA (occurrence: CA)
  Receive Date: 20170906
  Receipt Date: 20171025
  Transmission Date: 20180320
  Serious: Yes (Other)
  Sender: FDA-Public Use
  Company Number: CA-EMD SERONO-E2B_80080210

PATIENT
  Sex: Female

DRUGS (1)
  1. SAIZEN [Suspect]
     Active Substance: SOMATROPIN
     Indication: PRODUCT USED FOR UNKNOWN INDICATION
     Route: 058
     Dates: start: 20170517, end: 20170823

REACTIONS (3)
  - Drug ineffective [Unknown]
  - Intracranial pressure increased [Recovering/Resolving]
  - Hypothalamo-pituitary disorder [Unknown]

NARRATIVE: CASE EVENT DATE: 2017
